FAERS Safety Report 5361761-0 (Version None)
Quarter: 2007Q2

REPORT INFORMATION
  Report Type: 
  Country: None (occurrence: None)
  Receive Date: 20070619
  Receipt Date: 20070618
  Transmission Date: 20071010
  Serious: Yes (Life-Threatening, Other)
  Sender: FDA-Public Use
  Company Number: JP-BRISTOL-MYERS SQUIBB COMPANY-13794086

PATIENT
  Age: 66 Year
  Sex: Female

DRUGS (2)
  1. TAXOL [Suspect]
     Indication: OVARIAN CANCER
     Route: 041
     Dates: start: 20030101, end: 20061207
  2. PARAPLATIN [Suspect]
     Indication: OVARIAN CANCER
     Route: 041
     Dates: start: 20030101, end: 20061207

REACTIONS (14)
  - INJECTION SITE REACTION [None]
  - LYMPHOCYTE PERCENTAGE DECREASED [None]
  - MALIGNANT NEOPLASM PROGRESSION [None]
  - METASTASES TO SPLEEN [None]
  - METASTASIS [None]
  - MONOCYTE PERCENTAGE DECREASED [None]
  - MYELODYSPLASTIC SYNDROME [None]
  - NEUTROPHIL PERCENTAGE INCREASED [None]
  - PLATELET COUNT DECREASED [None]
  - RED BLOOD CELL COUNT DECREASED [None]
  - REFRACTORY ANAEMIA [None]
  - SALPINGO-OOPHORECTOMY BILATERAL [None]
  - VASCULITIS [None]
  - WHITE BLOOD CELL COUNT INCREASED [None]
